FAERS Safety Report 19163804 (Version 1)
Quarter: 2021Q2

REPORT INFORMATION
  Report Type: Spontaneous
  Country: IL (occurrence: IL)
  Receive Date: 20210421
  Receipt Date: 20210421
  Transmission Date: 20210717
  Serious: Yes (Other)
  Sender: FDA-Public Use
  Company Number: IL-PFIZER INC-2021408609

PATIENT
  Age: 83 Year
  Sex: Female

DRUGS (1)
  1. METHOTREXATE SODIUM. [Suspect]
     Active Substance: METHOTREXATE SODIUM
     Dosage: 15 MG, WEEKLY
     Dates: start: 20210202

REACTIONS (6)
  - Lip swelling [Unknown]
  - Mucosal inflammation [Unknown]
  - Agranulocytosis [Unknown]
  - Pancytopenia [Unknown]
  - Oropharyngeal pain [Unknown]
  - Dysphagia [Unknown]
